FAERS Safety Report 6815682-4 (Version None)
Quarter: 2010Q3

REPORT INFORMATION
  Report Type: 
  Country: None (occurrence: None)
  Receive Date: 20100702
  Receipt Date: 20100625
  Transmission Date: 20110219
  Serious: Yes (Disabling, Other)
  Sender: FDA-Public Use
  Company Number: FR-AMGEN-QUU412865

PATIENT
  Sex: Male
  Weight: 62 kg

DRUGS (2)
  1. ARANESP [Suspect]
     Indication: PRODUCT USED FOR UNKNOWN INDICATION
     Route: 058
     Dates: start: 20100119, end: 20100429
  2. CHLORAMBUCIL [Suspect]
     Route: 048
     Dates: start: 20090901, end: 20100617

REACTIONS (4)
  - ENCEPHALITIS [None]
  - HALLUCINATION, VISUAL [None]
  - LEUKOENCEPHALOPATHY [None]
  - VISION BLURRED [None]
